FAERS Safety Report 5386504-6 (Version None)
Quarter: 2007Q3

REPORT INFORMATION
  Report Type: 
  Country: None (occurrence: None)
  Receive Date: 20070713
  Receipt Date: 20070711
  Transmission Date: 20080115
  Serious: Yes (Hospitalization)
  Sender: FDA-Public Use
  Company Number: US-BRISTOL-MYERS SQUIBB COMPANY-13842489

PATIENT
  Age: 86 Year
  Sex: Male
  Weight: 54 kg

DRUGS (8)
  1. CETUXIMAB [Suspect]
     Indication: NEOPLASM MALIGNANT
     Route: 042
     Dates: start: 20070618, end: 20070618
  2. OXALIPLATIN [Suspect]
     Indication: NEOPLASM MALIGNANT
     Route: 042
     Dates: start: 20070618, end: 20070618
  3. ACIPHEX [Concomitant]
  4. HYDROCHLOROTHIAZIDE [Concomitant]
  5. CELEBREX [Concomitant]
  6. KLOR-CON [Concomitant]
  7. IRON SULFATETHIAMIN COMPOUND TAB [Concomitant]
  8. TRIAMCINOLONE [Concomitant]
     Route: 061

REACTIONS (3)
  - DEHYDRATION [None]
  - HYPOKALAEMIA [None]
  - HYPONATRAEMIA [None]
